FAERS Safety Report 10367778 (Version 7)
Quarter: 2014Q3

REPORT INFORMATION
  Report Type: Spontaneous
  Country: US (occurrence: US)
  Receive Date: 20140807
  Receipt Date: 20140910
  Transmission Date: 20150326
  Serious: Yes (Hospitalization)
  Sender: FDA-Public Use
  Company Number: US-JNJFOC-20140721242

PATIENT
  Age: 85 Year
  Sex: Male
  Weight: 93.44 kg

DRUGS (29)
  1. CHOLESTYRAMINE. [Concomitant]
     Active Substance: CHOLESTYRAMINE
     Route: 065
  2. AVODART [Concomitant]
     Active Substance: DUTASTERIDE
     Route: 048
  3. AMLODIPINE [Concomitant]
     Active Substance: AMLODIPINE BESYLATE
     Route: 048
  4. OMEPRAZOLE. [Concomitant]
     Active Substance: OMEPRAZOLE
     Route: 048
  5. VITAMIN D2 [Concomitant]
     Active Substance: ERGOCALCIFEROL
     Route: 048
  6. SYNTHROID [Concomitant]
     Active Substance: LEVOTHYROXINE SODIUM
     Route: 048
  7. MELATONIN [Concomitant]
     Active Substance: MELATONIN
     Route: 048
  8. CALTRATE WITH VITAMIN D [Concomitant]
     Active Substance: CALCIUM CARBONATE\VITAMIN D
  9. CORTISPORIN OTIC [Concomitant]
     Dosage: 3.5 MG -10,000 UNIT/ML
     Route: 001
  10. BENEFIBER [Concomitant]
     Active Substance: STARCH, WHEAT
     Dosage: 1-2 TABLESPOONS /DAY
     Route: 065
  11. NITROSTAT [Concomitant]
     Active Substance: NITROGLYCERIN
     Route: 060
  12. XARELTO [Suspect]
     Active Substance: RIVAROXABAN
     Indication: PULMONARY EMBOLISM
     Route: 048
     Dates: start: 20140703, end: 20140731
  13. LIDEX [Concomitant]
     Active Substance: FLUOCINONIDE
     Route: 061
  14. TOPROL XL [Concomitant]
     Active Substance: METOPROLOL SUCCINATE
     Route: 048
  15. CRESTOR [Concomitant]
     Active Substance: ROSUVASTATIN CALCIUM
     Route: 065
  16. GABAPENTIN. [Concomitant]
     Active Substance: GABAPENTIN
     Route: 048
  17. SKELAXIN [Concomitant]
     Active Substance: METAXALONE
     Route: 048
  18. ALPRAZOLAM. [Concomitant]
     Active Substance: ALPRAZOLAM
     Route: 048
  19. ENABLEX [Concomitant]
     Active Substance: DARIFENACIN\DARIFENACIN HYDROBROMIDE
     Indication: NOCTURIA
     Dosage: 1-2 /DAY
     Route: 048
  20. COENZYME Q10 [Concomitant]
     Active Substance: UBIDECARENONE
     Route: 048
  21. TRICOR [Concomitant]
     Active Substance: FENOFIBRATE
     Route: 048
  22. PLAVIX [Concomitant]
     Active Substance: CLOPIDOGREL BISULFATE
     Route: 048
  23. LANOXIN [Concomitant]
     Active Substance: DIGOXIN
     Route: 048
  24. LOMOTIL [Concomitant]
     Active Substance: ATROPINE SULFATE\DIPHENOXYLATE HYDROCHLORIDE
     Indication: DIARRHOEA
     Dosage: 2..5 MG -0.025 MG
     Route: 048
  25. CYCLOBENZAPRINE [Concomitant]
     Active Substance: CYCLOBENZAPRINE
     Indication: MUSCLE SPASMS
     Route: 048
  26. BENICAR [Concomitant]
     Active Substance: OLMESARTAN MEDOXOMIL
     Route: 048
  27. XARELTO [Suspect]
     Active Substance: RIVAROXABAN
     Indication: DEEP VEIN THROMBOSIS
     Route: 048
     Dates: start: 20140703, end: 20140731
  28. DIGOXIN. [Concomitant]
     Active Substance: DIGOXIN
     Route: 048
  29. TOVIAZ [Concomitant]
     Active Substance: FESOTERODINE FUMARATE
     Route: 048

REACTIONS (2)
  - Anaemia [Unknown]
  - Gastrointestinal polyp haemorrhage [Recovered/Resolved]

NARRATIVE: CASE EVENT DATE: 20140728
